FAERS Safety Report 24841846 (Version 2)
Quarter: 2025Q1

REPORT INFORMATION
  Report Type: Spontaneous
  Country: FR (occurrence: FR)
  Receive Date: 20250114
  Receipt Date: 20250203
  Transmission Date: 20250408
  Serious: Yes (Death, Other)
  Sender: AMGEN
  Company Number: FR-AMGEN-FRASP2025004094

PATIENT
  Age: 66 Year
  Sex: Female
  Weight: 100 kg

DRUGS (9)
  1. XGEVA [Suspect]
     Active Substance: DENOSUMAB
     Indication: Prophylaxis
     Dosage: 120 MG, ONCE EVERY 4 WK
     Route: 058
     Dates: start: 20240419, end: 20240419
  2. XGEVA [Suspect]
     Active Substance: DENOSUMAB
     Indication: Bone disorder
  3. ENHERTU [Suspect]
     Active Substance: FAM-TRASTUZUMAB DERUXTECAN-NXKI
     Indication: HER2 low breast cancer
     Route: 040
     Dates: start: 20240830, end: 20240830
  4. ENHERTU [Suspect]
     Active Substance: FAM-TRASTUZUMAB DERUXTECAN-NXKI
     Indication: Breast cancer metastatic
  5. Orocal vitamine d3 [Concomitant]
     Indication: Vitamin supplementation
     Dosage: 1 TABLET QD
     Route: 048
     Dates: start: 20240628
  6. Orocal vitamine d3 [Concomitant]
     Indication: Vitamin D deficiency
  7. BISOPROLOL [Concomitant]
     Active Substance: BISOPROLOL
     Indication: Hypertension
     Dosage: 10 MILLIGRAM, QD
     Route: 048
     Dates: start: 20230101
  8. INSULIN ASPART [Concomitant]
     Active Substance: INSULIN ASPART
     Indication: Insulin-requiring type 2 diabetes mellitus
     Route: 058
     Dates: start: 20231130
  9. TOUJEO [Concomitant]
     Active Substance: INSULIN GLARGINE
     Indication: Insulin-requiring type 2 diabetes mellitus
     Dosage: 40 INTERNATIONAL UNIT, QD
     Route: 058
     Dates: start: 20230101

REACTIONS (5)
  - Syncope [Fatal]
  - Pulmonary toxicity [Fatal]
  - Pyelonephritis [Fatal]
  - Organising pneumonia [Fatal]
  - Eosinophilic pneumonia [Fatal]

NARRATIVE: CASE EVENT DATE: 20240101
